FAERS Safety Report 4405511-0 (Version None)
Quarter: 2004Q3

REPORT INFORMATION
  Report Type: 
  Country: None (occurrence: None)
  Receive Date: 20040715
  Receipt Date: 20040708
  Transmission Date: 20050211
  Serious: Yes (Other)
  Sender: FDA-Public Use
  Company Number: HQWYE979012JUL04

PATIENT
  Age: 62 Year
  Sex: Female

DRUGS (4)
  1. PREMPRO [Suspect]
     Dates: start: 20000101, end: 20020701
  2. PREMARIN [Suspect]
     Dates: start: 19870101, end: 19980101
  3. PREMPHASE (PREMARIN;CYCRIN 14/14) [Suspect]
     Dates: start: 19980101, end: 19990101
  4. PROVERA [Suspect]
     Dates: start: 19870101, end: 19980101

REACTIONS (2)
  - MYOCARDIAL INFARCTION [None]
  - SYSTEMIC LUPUS ERYTHEMATOSUS [None]
